FAERS Safety Report 7180604 (Version 71)
Quarter: 2019Q2

REPORT INFORMATION
  Report Type: Report from Study
  Country: CA (occurrence: CA)
  Receive Date: 20091118
  Receipt Date: 20190524
  Transmission Date: 20190711
  Serious: Yes (Other)
  Sender: FDA-Public Use
  Company Number: PHHY2009CA48284

PATIENT
  Age: 66 Year
  Sex: Female

DRUGS (5)
  1. SANDOSTATIN LAR DEPOT [Suspect]
     Active Substance: OCTREOTIDE ACETATE
     Indication: METASTATIC CARCINOID TUMOUR
     Dosage: 20 MG, QMO/EVERY 4 WEEKS
     Route: 030
     Dates: start: 20091007
  2. SANDOSTATIN LAR DEPOT [Suspect]
     Active Substance: OCTREOTIDE ACETATE
     Dosage: 30 MG, QMO (ONCE A MONTH)
     Route: 030
     Dates: start: 2013
  3. METFORMIN [Suspect]
     Active Substance: METFORMIN HYDROCHLORIDE
     Indication: PRODUCT USED FOR UNKNOWN INDICATION
     Dosage: 500 MG, BID
     Route: 065
  4. TEVETENS [Concomitant]
     Indication: PRODUCT USED FOR UNKNOWN INDICATION
     Dosage: UNK, QD
     Route: 065
  5. SANDOSTATIN LAR DEPOT [Suspect]
     Active Substance: OCTREOTIDE ACETATE
     Dosage: 30 MG, QMO
     Route: 030

REACTIONS (41)
  - Gastrointestinal polyp [Unknown]
  - Rectal haemorrhage [Not Recovered/Not Resolved]
  - Metastatic carcinoid tumour [Unknown]
  - Pain in extremity [Not Recovered/Not Resolved]
  - Body temperature decreased [Not Recovered/Not Resolved]
  - Nausea [Recovering/Resolving]
  - Dizziness [Unknown]
  - Injection site bruising [Unknown]
  - Paraesthesia [Recovering/Resolving]
  - Skin irritation [Unknown]
  - Blood pressure systolic increased [Unknown]
  - Myalgia [Unknown]
  - Injection site swelling [Recovering/Resolving]
  - Injection site pain [Unknown]
  - Limb discomfort [Unknown]
  - Injection site haemorrhage [Unknown]
  - Diarrhoea [Unknown]
  - Bowel movement irregularity [Unknown]
  - Ligament sprain [Unknown]
  - Incision site complication [Recovering/Resolving]
  - Weight decreased [Unknown]
  - Rash erythematous [Unknown]
  - Abdominal pain [Unknown]
  - Arthralgia [Unknown]
  - Alopecia [Unknown]
  - Blood glucose increased [Unknown]
  - Pruritus [Unknown]
  - Malignant neoplasm progression [Unknown]
  - Blister [Unknown]
  - Abdominal discomfort [Unknown]
  - Injection site mass [Recovered/Resolved]
  - Injection site discomfort [Unknown]
  - Blood pressure increased [Recovering/Resolving]
  - Fall [Unknown]
  - Contusion [Unknown]
  - Sciatica [Unknown]
  - Injection site warmth [Recovering/Resolving]
  - Headache [Unknown]
  - Arthritis [Unknown]
  - Flatulence [Unknown]
  - Injection site mass [Unknown]

NARRATIVE: CASE EVENT DATE: 20130514
